FAERS Safety Report 4632664-1 (Version None)
Quarter: 2005Q2

REPORT INFORMATION
  Report Type: 
  Country: None (occurrence: None)
  Receive Date: 20050331
  Receipt Date: 20041015
  Transmission Date: 20051028
  Serious: Yes (Other)
  Sender: FDA-Public Use
  Company Number: 200414994BCC

PATIENT
  Age: 88 Year
  Sex: Male
  Weight: 72.5755 kg

DRUGS (2)
  1. ALEVE (CAPLET) [Suspect]
     Indication: ARTHRITIS
     Dosage: 220 MG, PRN, ORAL
     Route: 048
  2. EXTRA STRENGTH BAYER ASPIRIN (ACETYLSALICYLIC ACID) [Suspect]
     Indication: ARTHRITIS
     Dosage: 1000 MG, QOD, ORAL    AFEW YEARS
     Route: 048

REACTIONS (2)
  - ASTHENIA [None]
  - GASTRIC ULCER [None]
